FAERS Safety Report 23576802 (Version 1)
Quarter: 2024Q1

REPORT INFORMATION
  Report Type: Spontaneous
  Country: GB (occurrence: GB)
  Receive Date: 20240228
  Receipt Date: 20240228
  Transmission Date: 20240409
  Serious: Yes (Other)
  Sender: FDA-Public Use
  Company Number: GB-AMGEN-GBRSP2024034948

PATIENT

DRUGS (2)
  1. ROMIPLOSTIM [Suspect]
     Active Substance: ROMIPLOSTIM
     Indication: Immune thrombocytopenia
     Dosage: UNK
     Route: 065
  2. SARS-CoV-2 vaccine [Concomitant]
     Dosage: UNK

REACTIONS (3)
  - Immune thrombocytopenia [Unknown]
  - Petechiae [Unknown]
  - Vaginal haemorrhage [Unknown]
